FAERS Safety Report 7152776-0 (Version None)
Quarter: 2010Q4

REPORT INFORMATION
  Report Type: 
  Country: None (occurrence: None)
  Receive Date: 20101213
  Receipt Date: 20101201
  Transmission Date: 20110411
  Serious: Yes (Hospitalization)
  Sender: FDA-Public Use
  Company Number: CH-PFIZER INC-2010161338

PATIENT
  Age: 72 Year
  Sex: Female
  Weight: 58.6 kg

DRUGS (21)
  1. NEURONTIN [Interacting]
     Indication: CHOREA
     Dosage: 100 MG, 4X/DAY
     Route: 048
     Dates: end: 20101118
  2. TETRABENAZINE [Interacting]
     Dosage: 37.5 MG, 3X/DAY
     Route: 048
     Dates: start: 20100906, end: 20101105
  3. TETRABENAZINE [Interacting]
     Dosage: 37.5 MG, 2X/DAY
     Route: 048
     Dates: end: 20101105
  4. TETRABENAZINE [Interacting]
     Dosage: 37.5 MG, 3X/DAY
     Route: 048
     Dates: start: 20101106, end: 20101118
  5. TETRABENAZINE [Interacting]
     Dosage: 37.5 MG MORNING, 50 MG NOON, 37.5 MG EVENING
     Dates: start: 20101119
  6. STILNOX [Suspect]
     Dosage: 10 MG, SINGLE
     Route: 048
     Dates: start: 20101105, end: 20101105
  7. ASPIRIN [Concomitant]
     Dosage: 100 MG, 1X/DAY
  8. AMLODIPINE [Concomitant]
     Dosage: 5 MG, 2X/DAY
     Route: 048
  9. SORTIS [Concomitant]
     Dosage: 40 MG, 1X/DAY
     Route: 048
  10. BLOPRESS [Concomitant]
     Dosage: 16 MG, 1X/DAY
     Route: 048
     Dates: start: 20101105, end: 20101119
  11. BLOPRESS [Concomitant]
     Dosage: 32 MG, 1X/DAY
     Route: 048
     Dates: start: 20101120
  12. NEXIUM [Concomitant]
     Dosage: 40 MG, 1X/DAY
     Dates: start: 20100902, end: 20101116
  13. GLUCOPHAGE [Concomitant]
     Dosage: 500 MG, UNK
     Route: 048
     Dates: end: 20101119
  14. GLUCOPHAGE [Concomitant]
     Dosage: 500 MG, 2X/DAY
     Route: 048
     Dates: start: 20101120
  15. DIAMICRON [Concomitant]
     Dosage: 30 MG, 1X/DAY
     Route: 048
     Dates: start: 20101120
  16. ZOLPIDEM [Concomitant]
     Dosage: 10 MG, 1X/DAY
     Dates: start: 20101114
  17. TEMESTA [Concomitant]
     Dosage: 1 MG, UNK
     Route: 048
     Dates: start: 20101107, end: 20101113
  18. SODIUM CHLORIDE [Concomitant]
     Dosage: 1000 ML, 2X/DAY
     Route: 041
     Dates: start: 20101104, end: 20101104
  19. SODIUM CHLORIDE [Concomitant]
     Dosage: 500 ML, 1X/DAY
     Route: 041
     Dates: start: 20101105, end: 20101106
  20. POTASSIUM CHLORIDE [Concomitant]
     Dosage: 20 MMOL, 2X/DAY
     Route: 041
     Dates: start: 20101104, end: 20101104
  21. DORMICUM /AUS/ [Concomitant]
     Dosage: 7.5 MG, 1X/DAY
     Route: 048
     Dates: end: 20101103

REACTIONS (17)
  - ANXIETY [None]
  - ASTHENIA [None]
  - BLOOD GLUCOSE DECREASED [None]
  - COMA [None]
  - DECREASED APPETITE [None]
  - DEPRESSION [None]
  - DRUG INTERACTION [None]
  - FALL [None]
  - HEAD INJURY [None]
  - HYPONATRAEMIA [None]
  - INSOMNIA [None]
  - NAUSEA [None]
  - OFF LABEL USE [None]
  - OXYGEN SATURATION DECREASED [None]
  - SOMNOLENCE [None]
  - VERTIGO [None]
  - VOMITING [None]
